FAERS Safety Report 4570727-X (Version None)
Quarter: 2005Q1

REPORT INFORMATION
  Report Type: 
  Country: None (occurrence: None)
  Receive Date: 20050202
  Receipt Date: 20050120
  Transmission Date: 20050727
  Serious: Yes (Hospitalization, Other)
  Sender: FDA-Public Use
  Company Number: HQWYE789521JAN05

PATIENT
  Age: 8 Year
  Sex: Male

DRUGS (6)
  1. CHILDREN'S ADVIL [Suspect]
     Indication: GINGIVAL PAIN
     Dosage: ORAL
     Route: 048
     Dates: start: 20040601
  2. CHILDREN'S ADVIL [Suspect]
     Indication: ORAL PAIN
     Dosage: ORAL
     Route: 048
     Dates: start: 20040601
  3. CHILDREN'S ADVIL [Suspect]
     Indication: TOOTH ABSCESS
     Dosage: ORAL
     Route: 048
     Dates: start: 20040601
  4. CHILDREN'S ADVIL [Suspect]
     Route: 048
     Dates: start: 20041101
  5. CHILDREN'S ADVIL [Suspect]
     Dosage: ONE DOSE/KG EVERY SIX HOURS, ORAL
     Route: 048
     Dates: start: 20041202, end: 20041203
  6. ACETAMINOPHEN [Concomitant]

REACTIONS (6)
  - CELLULITIS [None]
  - CONDITION AGGRAVATED [None]
  - DENTAL CARIES [None]
  - EYELID OEDEMA [None]
  - INFLAMMATION [None]
  - TOOTH ABSCESS [None]
